FAERS Safety Report 14365754 (Version 2)
Quarter: 2018Q1

REPORT INFORMATION
  Report Type: Spontaneous
  Country: CA (occurrence: CA)
  Receive Date: 20180109
  Receipt Date: 20180119
  Transmission Date: 20180509
  Serious: Yes (Other)
  Sender: FDA-Public Use
  Company Number: CA-SUN PHARMACEUTICAL INDUSTRIES LTD-2017US-158622

PATIENT
  Age: 59 Year
  Sex: Female

DRUGS (1)
  1. PANTOPRAZOLE [Suspect]
     Active Substance: PANTOPRAZOLE
     Indication: INSOMNIA
     Dosage: 80 MG, QD
     Route: 048

REACTIONS (3)
  - Drug ineffective for unapproved indication [Unknown]
  - Dyspepsia [Unknown]
  - Incorrect route of drug administration [Unknown]
